FAERS Safety Report 7449680-7 (Version None)
Quarter: 2011Q2

REPORT INFORMATION
  Report Type: 
  Country: None (occurrence: None)
  Receive Date: 20110421
  Receipt Date: 20110413
  Transmission Date: 20111010
  Serious: Yes (Hospitalization, Disabling, Other)
  Sender: FDA-Public Use
  Company Number: TRP_07681_2011

PATIENT
  Sex: Female

DRUGS (5)
  1. CLOTRIMAZOLE [Concomitant]
  2. CASPOFUNGIN (CASPOFUNGIN) [Suspect]
     Indication: CANDIDA SEPSIS
     Dosage: (2 MG/KG 1X/24 HOURS)
     Dates: start: 20080527, end: 20080623
  3. NYSTATIN [Concomitant]
  4. AMPHOTERICIN B [Suspect]
     Indication: CANDIDA SEPSIS
     Dosage: (7 MG/KG PER DAY FOR 4 WEEKS 0 DAYS)
     Dates: start: 20080514, end: 20080610
  5. INOTROPICS [Concomitant]

REACTIONS (3)
  - THROMBOCYTOPENIA [None]
  - HEARING IMPAIRED [None]
  - HAEMODYNAMIC INSTABILITY [None]
